FAERS Safety Report 8100051-X (Version None)
Quarter: 2012Q1

REPORT INFORMATION
  Report Type: 
  Country: None (occurrence: None)
  Receive Date: 20120129
  Receipt Date: 20111102
  Transmission Date: 20120608
  Serious: No
  Sender: FDA-Public Use
  Company Number: US-ABBOTT-11P-163-0870887-00

PATIENT
  Age: 28 Year
  Sex: Female

DRUGS (7)
  1. PAXIL [Concomitant]
     Indication: DEPRESSION
  2. PAXIL [Concomitant]
     Indication: ANXIETY
  3. HUMIRA [Suspect]
     Indication: CROHN'S DISEASE
     Dates: start: 20110730
  4. TRAMADOL HCL [Concomitant]
     Indication: PAIN
  5. VICODIN [Concomitant]
     Indication: PAIN
  6. PREDNISONE TAB [Concomitant]
     Indication: CROHN'S DISEASE
  7. LYRICA [Concomitant]
     Indication: FIBROMYALGIA

REACTIONS (2)
  - CROHN'S DISEASE [None]
  - DRUG INEFFECTIVE [None]
